FAERS Safety Report 14475020 (Version 2)
Quarter: 2018Q1

REPORT INFORMATION
  Report Type: Spontaneous
  Country: US (occurrence: US)
  Receive Date: 20180201
  Receipt Date: 20180205
  Transmission Date: 20180509
  Serious: Yes (Hospitalization)
  Sender: FDA-Public Use
  Company Number: US-FRESENIUS MEDICAL CARE RENAL THERAPIES GROUP-FMC-1801-000167

PATIENT
  Sex: Female

DRUGS (8)
  1. ARIPIPRAZOLE. [Concomitant]
     Active Substance: ARIPIPRAZOLE
  2. AMLODIPINE [Concomitant]
     Active Substance: AMLODIPINE BESYLATE
  3. CLOPIDOGREL [Concomitant]
     Active Substance: CLOPIDOGREL BISULFATE
  4. FAMOTIDINE. [Concomitant]
     Active Substance: FAMOTIDINE
  5. ALBUTEROL. [Concomitant]
     Active Substance: ALBUTEROL
  6. DELFLEX [Suspect]
     Active Substance: CALCIUM CHLORIDE\DEXTROSE\MAGNESIUM CHLORIDE\SODIUM CHLORIDE\SODIUM LACTATE
     Indication: END STAGE RENAL DISEASE
     Route: 033
  7. CARVEDILOL. [Concomitant]
     Active Substance: CARVEDILOL
  8. BUPROPION. [Concomitant]
     Active Substance: BUPROPION

REACTIONS (2)
  - Metabolic encephalopathy [Recovering/Resolving]
  - Blood glucose decreased [Recovering/Resolving]
